FAERS Safety Report 8457158-7 (Version None)
Quarter: 2012Q2

REPORT INFORMATION
  Report Type: 
  Country: None (occurrence: None)
  Receive Date: 20120621
  Receipt Date: 20120319
  Transmission Date: 20120825
  Serious: No
  Sender: FDA-Public Use
  Company Number: US-TEVA-328861USA

PATIENT
  Sex: Male

DRUGS (1)
  1. FENTORA [Suspect]
     Indication: BACK PAIN
     Route: 002

REACTIONS (4)
  - EXPIRED DRUG ADMINISTERED [None]
  - OFF LABEL USE [None]
  - SOMNOLENCE [None]
  - DRUG INEFFECTIVE [None]
